FAERS Safety Report 5048264-8 (Version None)
Quarter: 2006Q2

REPORT INFORMATION
  Report Type: 
  Country: None (occurrence: None)
  Receive Date: 20060601
  Receipt Date: 20060217
  Transmission Date: 20061013
  Serious: No
  Sender: FDA-Public Use
  Company Number: 2006PV008880

PATIENT
  Age: 45 Year
  Sex: Female
  Weight: 94.3482 kg

DRUGS (1)
  1. BYETTA [Suspect]
     Indication: DIABETES MELLITUS NON-INSULIN-DEPENDENT
     Dosage: 5 MCG;BID;SC
     Route: 058
     Dates: start: 20060217

REACTIONS (2)
  - PAIN IN EXTREMITY [None]
  - SENSORY DISTURBANCE [None]
